FAERS Safety Report 6121267-8 (Version None)
Quarter: 2009Q1

REPORT INFORMATION
  Report Type: 
  Country: None (occurrence: None)
  Receive Date: 20090313
  Receipt Date: 20090311
  Transmission Date: 20090719
  Serious: Yes (Hospitalization)
  Sender: FDA-Public Use
  Company Number: SP02198

PATIENT
  Age: 49 Year
  Sex: Male

DRUGS (11)
  1. VISICOL [Suspect]
     Indication: COLONOSCOPY
     Dosage: (50 GM), ORAL
     Route: 048
     Dates: start: 20081209, end: 20081209
  2. VISICOL [Suspect]
     Indication: PREOPERATIVE CARE
     Dosage: (50 GM), ORAL
     Route: 048
     Dates: start: 20081209, end: 20081209
  3. LEVOFLOXACIN [Concomitant]
  4. AMPICILLIN WITH SULBACTAM [Concomitant]
  5. SCOPOLAMINE [Concomitant]
  6. REBAMIPIDE [Concomitant]
  7. LOXOPROFEN [Concomitant]
  8. POLYCARBOPHIL CALCIUM [Concomitant]
  9. MAGNESIUM OXIDE [Concomitant]
  10. CLOSTRIDIUM BUTYRICUM [Concomitant]
  11. SENNOSIDE [Concomitant]

REACTIONS (5)
  - DEHYDRATION [None]
  - DIARRHOEA [None]
  - OEDEMA PERIPHERAL [None]
  - RENAL FAILURE ACUTE [None]
  - VOMITING [None]
